FAERS Safety Report 15146685 (Version 1)
Quarter: 2018Q3

REPORT INFORMATION
  Report Type: Spontaneous
  Country: FR (occurrence: FR)
  Receive Date: 20180716
  Receipt Date: 20180716
  Transmission Date: 20181010
  Serious: Yes (Hospitalization)
  Sender: FDA-Public Use
  Company Number: FR-CONCORDIA PHARMACEUTICALS INC.-E2B_00013813

PATIENT
  Age: 48 Year
  Sex: Male

DRUGS (4)
  1. BENERVA [Concomitant]
     Active Substance: THIAMINE HYDROCHLORIDE
  2. PREDNISOLONE. [Suspect]
     Active Substance: PREDNISOLONE
     Indication: HEPATITIS ACUTE
     Route: 048
     Dates: start: 20180518, end: 20180522
  3. DIFFU K [Concomitant]
     Active Substance: POTASSIUM CHLORIDE
  4. SERESTA [Concomitant]
     Active Substance: OXAZEPAM

REACTIONS (1)
  - Pneumonia [Recovering/Resolving]

NARRATIVE: CASE EVENT DATE: 20180521
